FAERS Safety Report 5376353-7 (Version None)
Quarter: 2007Q3

REPORT INFORMATION
  Report Type: 
  Country: None (occurrence: None)
  Receive Date: 20070702
  Receipt Date: 20070620
  Transmission Date: 20080115
  Serious: Yes (Hospitalization)
  Sender: FDA-Public Use
  Company Number: FR-GILEAD-2007-0012486

PATIENT
  Age: 42 Year
  Sex: Female
  Weight: 50 kg

DRUGS (3)
  1. TRUVADA [Suspect]
     Route: 048
     Dates: start: 20051216, end: 20070228
  2. ATAZANAVIR SULFATE [Suspect]
     Route: 048
     Dates: start: 20051206, end: 20070228
  3. RITONAVIR [Suspect]
     Route: 048
     Dates: start: 20051216, end: 20070228

REACTIONS (4)
  - FLUID RETENTION [None]
  - GENERAL PHYSICAL CONDITION ABNORMAL [None]
  - OSTEOPOROSIS [None]
  - RENAL FAILURE ACUTE [None]
